FAERS Safety Report 18416311 (Version 1)
Quarter: 2020Q4

REPORT INFORMATION
  Report Type: Spontaneous
  Country: FR (occurrence: FR)
  Receive Date: 20201022
  Receipt Date: 20201022
  Transmission Date: 20210114
  Serious: Yes (Death, Hospitalization, Other)
  Sender: FDA-Public Use
  Company Number: FR-ABBVIE-20K-056-3552755-00

PATIENT
  Age: 71 Year
  Sex: Male

DRUGS (2)
  1. VENCLYXTO [Suspect]
     Active Substance: VENETOCLAX
     Indication: RENAL FAILURE
     Route: 048
  2. VENCLYXTO [Suspect]
     Active Substance: VENETOCLAX
     Indication: HAEMATOLOGICAL MALIGNANCY

REACTIONS (4)
  - Asthenia [Unknown]
  - Hospitalisation [Unknown]
  - Renal failure [Unknown]
  - Death [Fatal]

NARRATIVE: CASE EVENT DATE: 202008
